FAERS Safety Report 5334818-8 (Version None)
Quarter: 2007Q2

REPORT INFORMATION
  Report Type: 
  Country: None (occurrence: None)
  Receive Date: 20070525
  Receipt Date: 20070520
  Transmission Date: 20071010
  Serious: Yes (Life-Threatening)
  Sender: FDA-Public Use
  Company Number: GB-ELI_LILLY_AND_COMPANY-GB200705005013

PATIENT
  Age: 69 Year
  Sex: Male

DRUGS (4)
  1. XIGRIS [Suspect]
     Indication: SEPSIS
     Dosage: 0.024 MG/KG, EVERY HOUR
     Route: 042
     Dates: start: 20070518
  2. NORADRENALINE [Concomitant]
  3. PARACETAMOL [Concomitant]
  4. HYDROCORTISONE [Concomitant]

REACTIONS (1)
  - PLATELET COUNT DECREASED [None]
